FAERS Safety Report 10347118 (Version 2)
Quarter: 2015Q1

REPORT INFORMATION
  Report Type: Spontaneous
  Country: FR (occurrence: FR)
  Receive Date: 20140729
  Receipt Date: 20150105
  Transmission Date: 20150720
  Serious: Yes (Hospitalization)
  Sender: FDA-Public Use
  Company Number: FR-JNJFOC-20140711222

PATIENT
  Age: 51 Year
  Sex: Female

DRUGS (9)
  1. STELARA [Suspect]
     Active Substance: USTEKINUMAB
     Indication: PSORIASIS
     Route: 058
     Dates: start: 20130313, end: 20140312
  2. OGASTORO [Concomitant]
     Active Substance: LANSOPRAZOLE
     Route: 065
  3. SEROPLEX [Concomitant]
     Active Substance: ESCITALOPRAM OXALATE
     Route: 065
  4. PARACETAMOL [Concomitant]
     Active Substance: ACETAMINOPHEN
     Route: 065
  5. CODEINE [Concomitant]
     Active Substance: CODEINE
     Route: 065
  6. IMOVANE [Concomitant]
     Active Substance: ZOPICLONE
     Route: 065
  7. BI-PROFENID [Suspect]
     Active Substance: KETOPROFEN
     Indication: PSORIASIS
     Route: 048
     Dates: end: 201403
  8. MIOREL [Concomitant]
     Active Substance: ORPHENADRINE
     Route: 065
  9. SERESTA [Concomitant]
     Active Substance: OXAZEPAM
     Route: 065

REACTIONS (4)
  - Mitral valve incompetence [Recovering/Resolving]
  - Cardiac failure [Recovered/Resolved with Sequelae]
  - Congestive cardiomyopathy [Not Recovered/Not Resolved]
  - Tricuspid valve incompetence [Recovering/Resolving]

NARRATIVE: CASE EVENT DATE: 201402
